FAERS Safety Report 7653664-3 (Version None)
Quarter: 2011Q3

REPORT INFORMATION
  Report Type: 
  Country: None (occurrence: None)
  Receive Date: 20110803
  Receipt Date: 20110728
  Transmission Date: 20111222
  Serious: Yes (Hospitalization, Disabling, Other)
  Sender: FDA-Public Use
  Company Number: JP-PFIZER INC-2011159002

PATIENT
  Age: 85 Year
  Sex: Male

DRUGS (8)
  1. MEXITIL [Concomitant]
     Dosage: 100 MG, 3X/DAY
  2. ALDACTONE [Concomitant]
     Dosage: UNK; ONCE DAILY
  3. SALOBEL [Concomitant]
     Dosage: 100 MG, 1X/DAY
  4. LYRICA [Suspect]
     Indication: NEURALGIA
     Dosage: 75 MG, 1X/DAY
     Route: 048
     Dates: start: 20110630, end: 20110705
  5. LASIX [Concomitant]
     Dosage: 80 MG, 1X/DAY
  6. MUCOSTA [Concomitant]
     Dosage: 100 MG, 3X/DAY
  7. LENDORMIN [Concomitant]
     Dosage: 0.25 MG, 1X/DAY
  8. MAGNESIUM OXIDE [Concomitant]
     Dosage: 330(UNITS UNKNOWN); 6 TIMES DAILY

REACTIONS (1)
  - MUSCULAR WEAKNESS [None]
